FAERS Safety Report 10926943 (Version 1)
Quarter: 2015Q1

REPORT INFORMATION
  Report Type: Spontaneous
  Country: GB (occurrence: GB)
  Receive Date: 20150318
  Receipt Date: 20150318
  Transmission Date: 20150721
  Serious: Yes (Hospitalization, Other)
  Sender: FDA-Public Use
  Company Number: GB-BANPHARM-20153717

PATIENT
  Age: 45 Year
  Sex: Female

DRUGS (3)
  1. IBUPROFEN UNKNOWN PRODUCT [Suspect]
     Active Substance: IBUPROFEN
     Indication: TOOTHACHE
     Dosage: 400 MG, QID,
     Route: 048
     Dates: start: 20150216, end: 20150223
  2. CENTRUM [Concomitant]
     Active Substance: VITAMINS
  3. SALBUTAMOL [Concomitant]
     Active Substance: ALBUTEROL

REACTIONS (3)
  - Nausea [Unknown]
  - Gastric ulcer perforation [Recovering/Resolving]
  - Abdominal pain upper [Unknown]

NARRATIVE: CASE EVENT DATE: 20150224
